FAERS Safety Report 21628689 (Version 1)
Quarter: 2022Q4

REPORT INFORMATION
  Report Type: Spontaneous
  Country: CA (occurrence: CA)
  Receive Date: 20221122
  Receipt Date: 20221122
  Transmission Date: 20230112
  Serious: Yes (Other)
  Sender: FDA-Public Use
  Company Number: CA-PMX02-22-00029

PATIENT
  Age: 60 Year
  Sex: Male

DRUGS (3)
  1. BRONCHITOL [Suspect]
     Active Substance: MANNITOL
     Indication: Product used for unknown indication
     Dosage: UNK
     Route: 065
  2. BRONCHITOL [Suspect]
     Active Substance: MANNITOL
     Indication: Product used for unknown indication
     Dosage: UNK
     Route: 065
  3. RINVOQ [Suspect]
     Active Substance: UPADACITINIB
     Indication: Psoriatic arthropathy
     Dosage: 15 MG (15 MG) 1 IN 1 D
     Route: 048

REACTIONS (5)
  - Abdominal distension [Unknown]
  - Drug hypersensitivity [Unknown]
  - Gastric haemorrhage [Unknown]
  - Malaise [Unknown]
  - Muscle spasms [Unknown]
